FAERS Safety Report 23483825 (Version 3)
Quarter: 2024Q1

REPORT INFORMATION
  Report Type: Spontaneous
  Country: US (occurrence: US)
  Receive Date: 20240205
  Receipt Date: 20240321
  Transmission Date: 20240410
  Serious: Yes (Other)
  Sender: FDA-Public Use
  Company Number: US-BRISTOL-MYERS SQUIBB COMPANY-2024-017250

PATIENT
  Age: 73 Year
  Sex: Female

DRUGS (2)
  1. LENALIDOMIDE [Suspect]
     Active Substance: LENALIDOMIDE
     Indication: Plasma cell myeloma
     Dosage: TAKE 1 CAPSULE (25MG) BY MOUTH WHOLE WITH WATER EVERY DAY FOR 21 DAYS. DO NOT BREAK, CHEW, OR OPEN
     Route: 048
     Dates: start: 20231220
  2. LENALIDOMIDE [Suspect]
     Active Substance: LENALIDOMIDE
     Dosage: TAKE 1 WHOLE CAPSULE WITH WATER BY MOUTH ONCE DAILY FOR 21 DAYS. DO NOT BREAK, CHEW OR OPEN.
     Route: 048

REACTIONS (3)
  - Neutropenia [Recovering/Resolving]
  - Blood test abnormal [Unknown]
  - Oedema peripheral [Recovered/Resolved]
